FAERS Safety Report 4864155-7 (Version None)
Quarter: 2005Q4

REPORT INFORMATION
  Report Type: 
  Country: None (occurrence: None)
  Receive Date: 20051222
  Receipt Date: 20051219
  Transmission Date: 20060501
  Serious: Yes (Life-Threatening)
  Sender: FDA-Public Use
  Company Number: PL-GLAXOSMITHKLINE-B0404413A

PATIENT
  Age: 14 Year
  Sex: Male
  Weight: 85 kg

DRUGS (1)
  1. ZINACEF [Suspect]
     Indication: PHARYNGITIS
     Dosage: 750MG PER DAY
     Route: 030
     Dates: start: 20051212

REACTIONS (9)
  - ASTHENIA [None]
  - BLOOD PRESSURE DECREASED [None]
  - DYSPNOEA [None]
  - HYPERHIDROSIS [None]
  - HYPOTONIA [None]
  - NAUSEA [None]
  - PRURITUS [None]
  - URTICARIA [None]
  - VOMITING [None]
